FAERS Safety Report 11330037 (Version 1)
Quarter: 2015Q3

REPORT INFORMATION
  Report Type: Spontaneous
  Country: JP (occurrence: JP)
  Receive Date: 20150803
  Receipt Date: 20150803
  Transmission Date: 20151125
  Serious: Yes (Death, Hospitalization, Other)
  Sender: FDA-Public Use
  Company Number: JP-PFIZER INC-2015239199

PATIENT
  Age: 65 Year
  Sex: Female
  Weight: 53 kg

DRUGS (36)
  1. LEVOFOLINATE YAKULT [Suspect]
     Active Substance: LEVOLEUCOVORIN CALCIUM
     Dosage: 192.6 MG (280 MG), 1X/DAY
     Route: 041
     Dates: start: 20140624, end: 20140624
  2. FLUOROURACIL. [Suspect]
     Active Substance: FLUOROURACIL
     Indication: PANCREATIC CARCINOMA
     Dosage: 2338.4 MG/M2 (3400 MG), CYCLIC (DAYS 1-2 CONTINUOUS INFUSION)
     Route: 041
     Dates: start: 20140129, end: 20140129
  3. FLUOROURACIL. [Suspect]
     Active Substance: FLUOROURACIL
     Dosage: 2269.6 MG/M2 (3300 MG), CYCLIC (DAYS 1-2 CONTINUOUS INFUSION)
     Route: 041
     Dates: start: 20140311, end: 20140311
  4. ELPLAT [Suspect]
     Active Substance: OXALIPLATIN
     Dosage: 61.2 MG (89 MG), 1X/DAY
     Route: 041
     Dates: start: 20140401, end: 20140401
  5. ELPLAT [Suspect]
     Active Substance: OXALIPLATIN
     Dosage: 61.2 MG (89 MG), 1X/DAY
     Route: 041
     Dates: start: 20140603, end: 20140603
  6. LEVOFOLINATE YAKULT [Suspect]
     Active Substance: LEVOLEUCOVORIN CALCIUM
     Dosage: 192.6 MG (280 MG), 1X/DAY
     Route: 041
     Dates: start: 20140401, end: 20140401
  7. FLUOROURACIL. [Suspect]
     Active Substance: FLUOROURACIL
     Dosage: 2269.6 MG/M2 (3300 MG), CYCLIC (DAYS 1-2 CONTINUOUS INFUSION)
     Route: 041
     Dates: start: 20140513, end: 20140513
  8. CAMPTO [Suspect]
     Active Substance: IRINOTECAN
     Dosage: 144 MG/M2 (210 MG), 1X/DAY
     Route: 041
     Dates: start: 20140624, end: 20140624
  9. ELPLAT [Suspect]
     Active Substance: OXALIPLATIN
     Dosage: 61.9 MG/M2 (90 MG), 1X/DAY
     Route: 041
     Dates: start: 20140220, end: 20140220
  10. LEVOFOLINATE YAKULT [Suspect]
     Active Substance: LEVOLEUCOVORIN CALCIUM
     Indication: PANCREATIC CARCINOMA
     Dosage: 192.6 MG (280 MG), 1X/DAY
     Route: 041
     Dates: start: 20140129, end: 20140129
  11. LEVOFOLINATE YAKULT [Suspect]
     Active Substance: LEVOLEUCOVORIN CALCIUM
     Dosage: 192.6 MG (280 MG), 1X/DAY
     Route: 041
     Dates: start: 20140603, end: 20140603
  12. FLUOROURACIL. [Suspect]
     Active Substance: FLUOROURACIL
     Dosage: 2269.6 MG/M2 (3300 MG), CYCLIC (DAYS 1-2 CONTINUOUS INFUSION)
     Route: 041
     Dates: start: 20140715, end: 20140715
  13. CAMPTO [Suspect]
     Active Substance: IRINOTECAN
     Dosage: 144 MG/M2 (210 MG), 1X/DAY
     Route: 041
     Dates: start: 20140220, end: 20140220
  14. CAMPTO [Suspect]
     Active Substance: IRINOTECAN
     Dosage: 144 MG/M2 (210 MG), 1X/DAY
     Route: 041
     Dates: start: 20140311, end: 20140311
  15. CAMPTO [Suspect]
     Active Substance: IRINOTECAN
     Dosage: 144 MG/M2 (210 MG), 1X/DAY
     Route: 041
     Dates: start: 20140422, end: 20140422
  16. CAMPTO [Suspect]
     Active Substance: IRINOTECAN
     Dosage: 144 MG/M2 (210 MG), 1X/DAY
     Route: 041
     Dates: start: 20140513, end: 20140513
  17. ELPLAT [Suspect]
     Active Substance: OXALIPLATIN
     Dosage: 61.2 MG (89 MG), 1X/DAY
     Route: 041
     Dates: start: 20140311, end: 20140311
  18. ELPLAT [Suspect]
     Active Substance: OXALIPLATIN
     Dosage: 61.2 MG (89 MG), 1X/DAY
     Route: 041
     Dates: start: 20140624, end: 20140624
  19. LEVOFOLINATE YAKULT [Suspect]
     Active Substance: LEVOLEUCOVORIN CALCIUM
     Dosage: 192.6 MG (280 MG), 1X/DAY
     Route: 041
     Dates: start: 20140422, end: 20140422
  20. FLUOROURACIL. [Suspect]
     Active Substance: FLUOROURACIL
     Dosage: 2338.4 MG/M2 (3400 MG), CYCLIC (DAYS 1-2 CONTINUOUS INFUSION)
     Route: 041
     Dates: start: 20140220, end: 20140220
  21. ELPLAT [Suspect]
     Active Substance: OXALIPLATIN
     Indication: PANCREATIC CARCINOMA
     Dosage: 82.5 MG/M2 (120 MG), 1X/DAY
     Route: 041
     Dates: start: 20140129, end: 20140129
  22. LEVOFOLINATE YAKULT [Suspect]
     Active Substance: LEVOLEUCOVORIN CALCIUM
     Dosage: 192.6 MG (280 MG), 1X/DAY
     Route: 041
     Dates: start: 20140311, end: 20140311
  23. LEVOFOLINATE YAKULT [Suspect]
     Active Substance: LEVOLEUCOVORIN CALCIUM
     Dosage: 192.6 MG (280 MG), 1X/DAY
     Route: 041
     Dates: start: 20140715, end: 20140715
  24. FLUOROURACIL. [Suspect]
     Active Substance: FLUOROURACIL
     Dosage: 2269.6 MG/M2 (3300 MG), CYCLIC (DAYS 1-2 CONTINUOUS INFUSION)
     Route: 041
     Dates: start: 20140422, end: 20140422
  25. FLUOROURACIL. [Suspect]
     Active Substance: FLUOROURACIL
     Dosage: 2269.6 MG/M2 (3300 MG), CYCLIC (DAYS 1-2 CONTINUOUS INFUSION)
     Route: 041
     Dates: start: 20140603, end: 20140603
  26. CAMPTO [Suspect]
     Active Substance: IRINOTECAN
     Dosage: 144 MG/M2 (210 MG), 1X/DAY
     Route: 041
     Dates: start: 20140401, end: 20140401
  27. ELPLAT [Suspect]
     Active Substance: OXALIPLATIN
     Dosage: 61.2 MG (89 MG), 1X/DAY
     Route: 041
     Dates: start: 20140422, end: 20140422
  28. ELPLAT [Suspect]
     Active Substance: OXALIPLATIN
     Dosage: 61.2 MG (89 MG), 1X/DAY
     Route: 041
     Dates: start: 20140715, end: 20140715
  29. LEVOFOLINATE YAKULT [Suspect]
     Active Substance: LEVOLEUCOVORIN CALCIUM
     Dosage: 192.6 MG (280 MG), 1X/DAY
     Route: 041
     Dates: start: 20140220, end: 20140220
  30. CAMPTO [Suspect]
     Active Substance: IRINOTECAN
     Indication: PANCREATIC CARCINOMA
     Dosage: 144 MG/M2 (210 MG), 1X/DAY
     Route: 041
     Dates: start: 20140129, end: 20140129
  31. ELPLAT [Suspect]
     Active Substance: OXALIPLATIN
     Dosage: 61.2 MG (89 MG), 1X/DAY
     Route: 041
     Dates: start: 20140513, end: 20140513
  32. LEVOFOLINATE YAKULT [Suspect]
     Active Substance: LEVOLEUCOVORIN CALCIUM
     Dosage: 192.6 MG (280 MG), 1X/DAY
     Route: 041
     Dates: start: 20140513, end: 20140513
  33. CAMPTO [Suspect]
     Active Substance: IRINOTECAN
     Dosage: 144 MG/M2 (210 MG), 1X/DAY
     Route: 041
     Dates: start: 20140603, end: 20140603
  34. CAMPTO [Suspect]
     Active Substance: IRINOTECAN
     Dosage: 144 MG/M2 (210 MG), 1X/DAY
     Route: 041
     Dates: start: 20140715, end: 20140715
  35. FLUOROURACIL. [Suspect]
     Active Substance: FLUOROURACIL
     Dosage: 2269.6 MG/M2 (3300 MG), CYCLIC (DAYS 1-2 CONTINUOUS INFUSION)
     Route: 041
     Dates: start: 20140401, end: 20140401
  36. FLUOROURACIL. [Suspect]
     Active Substance: FLUOROURACIL
     Dosage: 2269.6 MG/M2 (3300 MG), CYCLIC (DAYS 1-2 CONTINUOUS INFUSION)
     Route: 041
     Dates: start: 20140624, end: 20140624

REACTIONS (11)
  - Disease progression [Fatal]
  - Palmar-plantar erythrodysaesthesia syndrome [Unknown]
  - Pancreatic carcinoma [Fatal]
  - Diarrhoea [Unknown]
  - Fatigue [Unknown]
  - Haemoglobin decreased [Unknown]
  - Decreased appetite [Unknown]
  - Peripheral sensory neuropathy [Unknown]
  - White blood cell count decreased [Unknown]
  - Neutrophil count decreased [Unknown]
  - Hyperglycaemia [Unknown]

NARRATIVE: CASE EVENT DATE: 20140210
